FAERS Safety Report 10151486 (Version 1)
Quarter: 2014Q2

REPORT INFORMATION
  Report Type: Spontaneous
  Country: US (occurrence: US)
  Receive Date: 20140504
  Receipt Date: 20140504
  Transmission Date: 20141212
  Serious: No
  Sender: FDA-Public Use
  Company Number: US-009507513-1404USA013647

PATIENT
  Age: 47 Year
  Sex: Female

DRUGS (4)
  1. NASONEX [Suspect]
     Indication: HYPERSENSITIVITY
     Dosage: ONE SPRAY IN EACH NOSTRIL TWICE A DAY
     Route: 045
  2. VENTOLIN (ALBUTEROL) [Concomitant]
  3. ZYRTEC [Concomitant]
  4. NEXIUM [Concomitant]

REACTIONS (4)
  - Sinus headache [Not Recovered/Not Resolved]
  - Drug dose omission [Unknown]
  - Inappropriate schedule of drug administration [Unknown]
  - Product quality issue [Unknown]
